FAERS Safety Report 8062672-2 (Version None)
Quarter: 2012Q1

REPORT INFORMATION
  Report Type: 
  Country: None (occurrence: None)
  Receive Date: 20120123
  Receipt Date: 20120110
  Transmission Date: 20120608
  Serious: Yes (Other)
  Sender: FDA-Public Use
  Company Number: GB-SANOFI-AVENTIS-2012SA001111

PATIENT
  Age: 60 Year
  Sex: Male
  Weight: 76 kg

DRUGS (3)
  1. ALL OTHER THERAPEUTIC PRODUCTS [Concomitant]
     Indication: DRY SKIN
  2. FEXOFENADINE HCL [Suspect]
     Route: 065
     Dates: start: 20110401
  3. FEXOFENADINE HCL [Suspect]
     Indication: URTICARIA
     Route: 065
     Dates: start: 20110401

REACTIONS (6)
  - DYSPNOEA [None]
  - URTICARIA [None]
  - FATIGUE [None]
  - DERMATITIS ALLERGIC [None]
  - SLEEP APNOEA SYNDROME [None]
  - OVERDOSE [None]
